FAERS Safety Report 9633474 (Version 1)
Quarter: 2013Q4

REPORT INFORMATION
  Report Type: Spontaneous
  Country: US (occurrence: None)
  Receive Date: 20131018
  Receipt Date: 20131018
  Transmission Date: 20140711
  Serious: Yes (Life-Threatening, Hospitalization, Disabling, Other)
  Sender: FDA-Public Use
  Company Number: None

PATIENT
  Age: 73 Year
  Sex: Female
  Weight: 72.58 kg

DRUGS (8)
  1. METHOTREXATE [Suspect]
     Indication: ARTHRITIS
     Route: 048
     Dates: start: 201207, end: 201307
  2. PREDNISONE [Concomitant]
  3. XARELTO [Concomitant]
  4. OXYGEN [Concomitant]
  5. COENZIME Q-10 [Concomitant]
  6. RED YEAST RICE [Concomitant]
  7. MILK THISTLE [Concomitant]
  8. MULTI VITAMIN [Concomitant]

REACTIONS (4)
  - Pneumonia [None]
  - Stomatitis [None]
  - Pulmonary mass [None]
  - Adverse reaction [None]
